FAERS Safety Report 7372501-8 (Version None)
Quarter: 2011Q1

REPORT INFORMATION
  Report Type: 
  Country: None (occurrence: None)
  Receive Date: 20110324
  Receipt Date: 20110318
  Transmission Date: 20110831
  Serious: Yes (Hospitalization, Other)
  Sender: FDA-Public Use
  Company Number: BR-SANOFI-AVENTIS-2011SA013483

PATIENT
  Age: 64 Year
  Sex: Female
  Weight: 79 kg

DRUGS (13)
  1. SOLOSTAR [Concomitant]
  2. LANTUS [Suspect]
     Route: 058
  3. METFORMIN HCL [Concomitant]
     Route: 048
  4. MONOCORDIL [Concomitant]
     Route: 048
  5. GLIMEPIRIDE [Concomitant]
     Route: 048
  6. SOLOSTAR [Suspect]
     Route: 058
  7. LANTUS [Suspect]
     Route: 058
  8. APIDRA SOLOSTAR [Concomitant]
     Indication: TYPE 2 DIABETES MELLITUS
     Dosage: ACCORDING TO GLUCOSE LEVEL
     Route: 058
  9. LANTUS [Suspect]
     Indication: TYPE 2 DIABETES MELLITUS
     Route: 058
  10. CLOPIDOGREL [Concomitant]
     Route: 048
  11. SELOZOK [Concomitant]
     Route: 048
  12. SIMVASTATIN [Concomitant]
     Route: 048
  13. ENALAPRIL MALEATE [Concomitant]
     Indication: BLOOD PRESSURE
     Route: 048

REACTIONS (6)
  - INJECTION SITE PAIN [None]
  - ANGINA PECTORIS [None]
  - INJECTION SITE HAEMATOMA [None]
  - INJECTION SITE NODULE [None]
  - HYPERGLYCAEMIA [None]
  - INJECTION SITE HAEMORRHAGE [None]
